FAERS Safety Report 19253407 (Version 1)
Quarter: 2021Q2

REPORT INFORMATION
  Report Type: Spontaneous
  Country: US (occurrence: US)
  Receive Date: 20210513
  Receipt Date: 20210513
  Transmission Date: 20210717
  Serious: No
  Sender: FDA-Public Use
  Company Number: US-BIOGEN-2021BI01010306

PATIENT
  Age: 51 Year
  Sex: Male

DRUGS (3)
  1. PHENYLEPH/CHLORPHEN/HYRO [Concomitant]
     Route: 065
  2. GLUTAMINE [Concomitant]
     Active Substance: GLUTAMINE
     Route: 065
  3. VUMERITY [Suspect]
     Active Substance: DIROXIMEL FUMARATE
     Indication: MULTIPLE SCLEROSIS
     Route: 048
     Dates: start: 20210503

REACTIONS (2)
  - Dry mouth [Unknown]
  - Sexual dysfunction [Unknown]

NARRATIVE: CASE EVENT DATE: 20210503
